FAERS Safety Report 25157801 (Version 2)
Quarter: 2025Q2

REPORT INFORMATION
  Report Type: Report from Study
  Country: CA (occurrence: CA)
  Receive Date: 20250403
  Receipt Date: 20250428
  Transmission Date: 20250716
  Serious: Yes (Hospitalization, Other)
  Sender: TAKEDA
  Company Number: CA-TAKEDA-2025TUS031195

PATIENT
  Age: 73 Year
  Sex: Female

DRUGS (8)
  1. VEDOLIZUMAB [Suspect]
     Active Substance: VEDOLIZUMAB
     Indication: Crohn^s disease
  2. VEDOLIZUMAB [Suspect]
     Active Substance: VEDOLIZUMAB
  3. BUDESONIDE [Concomitant]
     Active Substance: BUDESONIDE
  4. VITAMIN D [Concomitant]
     Active Substance: VITAMIN D NOS
  5. B12 [Concomitant]
     Dosage: UNK UNK, MONTHLY
  6. FOLIC ACID [Concomitant]
     Active Substance: FOLIC ACID
  7. ASPIRIN [Concomitant]
     Active Substance: ASPIRIN
  8. CALCIUM [Concomitant]
     Active Substance: CALCIUM

REACTIONS (1)
  - Cerebrovascular accident [Recovering/Resolving]

NARRATIVE: CASE EVENT DATE: 20250319
